FAERS Safety Report 7883495-0 (Version None)
Quarter: 2011Q4

REPORT INFORMATION
  Report Type: 
  Country: None (occurrence: None)
  Receive Date: 20111102
  Receipt Date: 20110323
  Transmission Date: 20120403
  Serious: No
  Sender: FDA-Public Use
  Company Number: US-GLAXOSMITHKLINE-A0919565A

PATIENT
  Age: 87 Year
  Sex: Female

DRUGS (7)
  1. RYTHMOL SR [Suspect]
     Indication: ATRIAL FIBRILLATION
     Dosage: 325MG TWICE PER DAY
     Route: 048
     Dates: start: 20080101
  2. WARFARIN [Concomitant]
  3. COZAAR [Concomitant]
  4. CARTIA XT [Concomitant]
  5. CALCIUM [Concomitant]
  6. VITAMIN D [Concomitant]
  7. FISH OIL [Concomitant]

REACTIONS (10)
  - TINNITUS [None]
  - FEELING ABNORMAL [None]
  - HEADACHE [None]
  - GAIT DISTURBANCE [None]
  - PRODUCT QUALITY ISSUE [None]
  - PALPITATIONS [None]
  - FLUSHING [None]
  - ERYTHEMA [None]
  - DIZZINESS [None]
  - FEELING HOT [None]
